FAERS Safety Report 13061051 (Version 11)
Quarter: 2018Q2

REPORT INFORMATION
  Report Type: Report from Study
  Country: PL (occurrence: PL)
  Receive Date: 20161226
  Receipt Date: 20180402
  Transmission Date: 20180711
  Serious: Yes (Life-Threatening, Hospitalization, Other)
  Sender: FDA-Public Use
  Company Number: PL-ROCHE-1870157

PATIENT
  Age: 78 Year
  Sex: Female
  Weight: 75 kg

DRUGS (2)
  1. VEMURAFENIB. [Suspect]
     Active Substance: VEMURAFENIB
     Indication: MALIGNANT MELANOMA
     Dosage: DATE OF LAST DOSE PRIOR TO SAE WAS ON 08/DEC/2016.
     Route: 048
     Dates: start: 20161201
  2. COBIMETINIB. [Suspect]
     Active Substance: COBIMETINIB
     Indication: MALIGNANT MELANOMA
     Dosage: DATE OF LAST DOSE PRIOR TO SAE WAS ON 08/DEC/2016.
     Route: 048
     Dates: start: 20161125

REACTIONS (2)
  - Loss of consciousness [Recovered/Resolved with Sequelae]
  - Chorioretinopathy [Not Recovered/Not Resolved]

NARRATIVE: CASE EVENT DATE: 20161208
